FAERS Safety Report 18229497 (Version 1)
Quarter: 2020Q3

REPORT INFORMATION
  Report Type: Spontaneous
  Country: US (occurrence: US)
  Receive Date: 20200903
  Receipt Date: 20200903
  Transmission Date: 20201103
  Serious: Yes (Other)
  Sender: FDA-Public Use
  Company Number: US-ALLERGAN-2027083US

PATIENT
  Sex: Male

DRUGS (1)
  1. REFRESH TEARS [Suspect]
     Active Substance: CARBOXYMETHYLCELLULOSE SODIUM
     Indication: DRY EYE
     Dosage: 2 GTT
     Route: 047
     Dates: end: 202007

REACTIONS (3)
  - Drug ineffective [Unknown]
  - Cataract [Unknown]
  - Dry eye [Unknown]
